FAERS Safety Report 8001834-7 (Version None)
Quarter: 2011Q4

REPORT INFORMATION
  Report Type: 
  Country: None (occurrence: None)
  Receive Date: 20111220
  Receipt Date: 20111220
  Transmission Date: 20120403
  Serious: Yes (Disabling)
  Sender: FDA-Public Use
  Company Number: 1022556-2011-00069

PATIENT
  Sex: Male

DRUGS (1)
  1. ICY HOT ARM, NECK, LEG PATCH 5 CT [Suspect]
     Indication: MYALGIA
     Dosage: TOPICAL
     Route: 061

REACTIONS (3)
  - MEDICAL DEVICE COMPLICATION [None]
  - SCAB [None]
  - APPLICATION SITE EXFOLIATION [None]
